FAERS Safety Report 6328182-5 (Version None)
Quarter: 2009Q3

REPORT INFORMATION
  Report Type: 
  Country: None (occurrence: None)
  Receive Date: 20090825
  Receipt Date: 20081218
  Transmission Date: 20100115
  Serious: No
  Sender: FDA-Public Use
  Company Number: US-ABBOTT-08P-163-0494285-00

PATIENT

DRUGS (3)
  1. SYNTHROID [Suspect]
     Indication: DRUG USE FOR UNKNOWN INDICATION
     Dates: start: 20080801
  2. SYNTHROID [Suspect]
     Dosage: ONE MCG
  3. SYNTHROID [Suspect]

REACTIONS (1)
  - URTICARIA [None]
